FAERS Safety Report 4775733-8 (Version None)
Quarter: 2005Q3

REPORT INFORMATION
  Report Type: 
  Country: None (occurrence: None)
  Receive Date: 20050921
  Receipt Date: 20050921
  Transmission Date: 20060218
  Serious: Yes (Hospitalization, Other)
  Sender: FDA-Public Use
  Company Number: None

PATIENT
  Sex: Male
  Weight: 71.9 kg

DRUGS (7)
  1. METHOTREXATE [Suspect]
     Indication: ACUTE LYMPHOCYTIC LEUKAEMIA
     Dosage: 30 MG
     Dates: start: 20050901, end: 20050919
  2. METHOTREXATE [Suspect]
     Indication: ACUTE LYMPHOCYTIC LEUKAEMIA
     Dosage: 30 MG
     Dates: start: 20050825
  3. DEXAMETHASONE [Suspect]
     Dosage: 280 MG
     Dates: start: 20050825, end: 20050906
  4. CYTARABINE [Suspect]
     Dosage: 70 MG
     Dates: start: 20050824, end: 20050824
  5. DAUNORUBICIN HCL [Suspect]
     Dosage: 190.5 MG
     Dates: start: 20050825, end: 20050914
  6. ONCASPAR [Suspect]
     Dosage: 4750 IU
     Dates: start: 20050828, end: 20050828
  7. VINCRISTINE SULFATE [Suspect]
     Dosage: 8 MG
     Dates: start: 20050825, end: 20050914

REACTIONS (5)
  - HYPOAESTHESIA [None]
  - MOVEMENT DISORDER [None]
  - PARAESTHESIA [None]
  - PERIPHERAL MOTOR NEUROPATHY [None]
  - PROCEDURAL COMPLICATION [None]
